FAERS Safety Report 5021641-7 (Version None)
Quarter: 2006Q2

REPORT INFORMATION
  Report Type: 
  Country: None (occurrence: None)
  Receive Date: 20060605
  Receipt Date: 20041223
  Transmission Date: 20061013
  Serious: Yes (Other)
  Sender: FDA-Public Use
  Company Number: CHPA2004US04236

PATIENT
  Age: 32 Year
  Sex: Female
  Weight: 90.7 kg

DRUGS (2)
  1. MAALOX ANTACID QUICKDISLV TABS RS WLDBERRY (CALCIUM CARBONATE) CHEWABL [Suspect]
     Indication: STOMACH DISCOMFORT
     Dosage: 2 DF, PRN. ORAL; SEE IMAGE
     Route: 048
     Dates: start: 20041222, end: 20041223
  2. MAALOX ANTACID QUICKDISLV TABS RS WLDBERRY (CALCIUM CARBONATE) CHEWABL [Suspect]
     Indication: STOMACH DISCOMFORT
     Dosage: 2 DF, PRN. ORAL; SEE IMAGE
     Route: 048
     Dates: start: 20041209

REACTIONS (4)
  - ACCIDENTAL OVERDOSE [None]
  - HAEMATEMESIS [None]
  - NAUSEA [None]
  - THROMBOSIS [None]
